FAERS Safety Report 15997091 (Version 1)
Quarter: 2019Q1

REPORT INFORMATION
  Report Type: Spontaneous
  Country: US (occurrence: US)
  Receive Date: 20190222
  Receipt Date: 20190222
  Transmission Date: 20190418
  Serious: Yes (Other)
  Sender: FDA-Public Use
  Company Number: PHEH2019US007055

PATIENT
  Sex: Male

DRUGS (1)
  1. COSENTYX [Suspect]
     Active Substance: SECUKINUMAB
     Indication: PSORIASIS
     Dosage: UNK
     Route: 065
     Dates: start: 2016

REACTIONS (7)
  - Chronic inflammatory demyelinating polyradiculoneuropathy [Not Recovered/Not Resolved]
  - Paresis [Not Recovered/Not Resolved]
  - Pain [Unknown]
  - Nerve injury [Not Recovered/Not Resolved]
  - Musculoskeletal disorder [Unknown]
  - Back disorder [Unknown]
  - Fall [Not Recovered/Not Resolved]
